FAERS Safety Report 6189846-X (Version None)
Quarter: 2009Q2

REPORT INFORMATION
  Report Type: 
  Country: None (occurrence: None)
  Receive Date: 20090514
  Receipt Date: 20090507
  Transmission Date: 20091009
  Serious: Yes (Hospitalization)
  Sender: FDA-Public Use
  Company Number: DE-BAYER-200919596GPV

PATIENT
  Age: 67 Year
  Sex: Male
  Weight: 76 kg

DRUGS (11)
  1. ALEMTUZUMAB [Suspect]
     Indication: CHRONIC LYMPHOCYTIC LEUKAEMIA
     Route: 058
     Dates: start: 20081128, end: 20081203
  2. DEXAMETHASONE 4MG TAB [Suspect]
     Indication: CHRONIC LYMPHOCYTIC LEUKAEMIA
     Route: 048
     Dates: start: 20081128, end: 20081201
  3. PEGFILGASTRIM [Suspect]
     Indication: CHRONIC LYMPHOCYTIC LEUKAEMIA
     Route: 058
     Dates: start: 20081128
  4. POTASSIUM CHLORIDE [Concomitant]
     Indication: CHRONIC LYMPHOCYTIC LEUKAEMIA
     Dates: start: 20081204, end: 20081218
  5. PANTOZOL [Concomitant]
     Dosage: 1-0-0-0
  6. METOPROLOL [Concomitant]
  7. ALLOPURINOL [Concomitant]
     Dosage: 0-0.5-0-0
  8. ACETYLCYSTEINE [Concomitant]
     Dosage: 1-0-0-0
  9. AVELOX [Concomitant]
     Dosage: 1-0-0-0
  10. ASPIRIN [Concomitant]
     Dosage: 0-1-0-0
  11. VALTREX [Concomitant]
     Dosage: 1-1-1-0

REACTIONS (2)
  - COLITIS [None]
  - DIARRHOEA [None]
